FAERS Safety Report 15835545 (Version 2)
Quarter: 2019Q1

REPORT INFORMATION
  Report Type: Spontaneous
  Country: GB (occurrence: GB)
  Receive Date: 20190117
  Receipt Date: 20190127
  Transmission Date: 20190417
  Serious: Yes (Other)
  Sender: FDA-Public Use
  Company Number: GB-BRISTOL-MYERS SQUIBB COMPANY-BMS-2019-001479

PATIENT
  Age: 41 Year
  Sex: Male

DRUGS (3)
  1. ELIQUIS [Suspect]
     Active Substance: APIXABAN
     Indication: DEEP VEIN THROMBOSIS
     Dosage: 10 MG, BID
     Route: 048
     Dates: start: 2018
  2. VITAMIN D                          /00107901/ [Concomitant]
     Active Substance: ERGOCALCIFEROL
     Indication: PRODUCT USED FOR UNKNOWN INDICATION
     Dosage: UNK
     Route: 065
  3. ELIQUIS [Suspect]
     Active Substance: APIXABAN
     Indication: PRODUCT USED FOR UNKNOWN INDICATION
     Dosage: 5 MG, BID
     Route: 048
     Dates: end: 201901

REACTIONS (20)
  - Pruritus [Recovered/Resolved]
  - Musculoskeletal pain [Recovered/Resolved]
  - Panic attack [Recovered/Resolved]
  - Loss of consciousness [Recovered/Resolved]
  - Arthralgia [Recovered/Resolved]
  - Heart rate increased [Recovered/Resolved]
  - Anxiety [Recovered/Resolved]
  - Mood altered [Recovered/Resolved]
  - Haemorrhage [Recovered/Resolved]
  - Pain in extremity [Recovered/Resolved]
  - Drug intolerance [Recovered/Resolved]
  - Headache [Recovered/Resolved]
  - Skin laceration [Recovered/Resolved]
  - Abdominal distension [Recovered/Resolved]
  - Muscle tightness [Recovered/Resolved]
  - Abdominal pain upper [Recovered/Resolved]
  - Confusional state [Recovered/Resolved]
  - Constipation [Recovered/Resolved]
  - Restlessness [Recovered/Resolved]
  - Nervousness [Recovered/Resolved]

NARRATIVE: CASE EVENT DATE: 20181112
